FAERS Safety Report 10874530 (Version 3)
Quarter: 2016Q1

REPORT INFORMATION
  Report Type: Spontaneous
  Country: US (occurrence: US)
  Receive Date: 20150227
  Receipt Date: 20160105
  Transmission Date: 20160525
  Serious: No
  Sender: FDA-Public Use
  Company Number: US-GLAXOSMITHKLINE-US2015009406

PATIENT
  Age: 33 Year
  Sex: Female

DRUGS (6)
  1. LAMICTAL [Suspect]
     Active Substance: LAMOTRIGINE
     Dosage: UNK
  2. PRENATAL VITAMIN [Concomitant]
     Active Substance: VITAMINS
  3. VIMPAT [Concomitant]
     Active Substance: LACOSAMIDE
  4. FOLIC ACID. [Concomitant]
     Active Substance: FOLIC ACID
  5. LAMICTAL [Suspect]
     Active Substance: LAMOTRIGINE
     Indication: EPILEPSY
     Dosage: 100 MG AM AND 150 MG PM
     Route: 048
     Dates: start: 201301
  6. LAMICTAL [Suspect]
     Active Substance: LAMOTRIGINE
     Indication: EPILEPSY
     Dosage: 200 MG, UNK
     Dates: start: 2008

REACTIONS (4)
  - Drug dose omission [Unknown]
  - Exposure during pregnancy [Unknown]
  - Wrong technique in product usage process [Unknown]
  - Live birth [Unknown]

NARRATIVE: CASE EVENT DATE: 201508
